FAERS Safety Report 4945471-7 (Version None)
Quarter: 2006Q1

REPORT INFORMATION
  Report Type: 
  Country: None (occurrence: None)
  Receive Date: 20060316
  Receipt Date: 20060308
  Transmission Date: 20060701
  Serious: Yes (Other)
  Sender: FDA-Public Use
  Company Number: US-GLAXOSMITHKLINE-B0415004A

PATIENT
  Age: 10 Year
  Sex: Female

DRUGS (3)
  1. HYCAMTIN [Suspect]
     Indication: NEUROBLASTOMA
     Route: 042
  2. IRINOTECAN [Suspect]
     Indication: NEUROBLASTOMA
     Route: 042
  3. GRANULOCYTE COLONY STIMULATING FACTOR [Concomitant]
     Dosage: 5MCK CYCLIC
     Route: 058

REACTIONS (2)
  - CAECITIS [None]
  - NEUTROPENIA [None]
